FAERS Safety Report 4789576-2 (Version None)
Quarter: 2005Q4

REPORT INFORMATION
  Report Type: 
  Country: None (occurrence: None)
  Receive Date: 20051005
  Receipt Date: 20051005
  Transmission Date: 20060501
  Serious: No
  Sender: FDA-Public Use
  Company Number: None

PATIENT
  Age: 80 Year
  Sex: Female
  Weight: 59 kg

DRUGS (5)
  1. VANCOMYCIN [Suspect]
     Indication: INFECTION
     Dosage: 1 G IV Q DAY
     Route: 042
     Dates: start: 20000220, end: 20050304
  2. LEVOFLOXACIN [Suspect]
     Dosage: 500 MG IV DAILY
     Route: 042
  3. AZTREONAM [Suspect]
     Dosage: 1 GM IV Q 12 HOURS
     Route: 042
  4. PANTOPRAZOLE [Concomitant]
  5. ATORVASTATIN [Concomitant]

REACTIONS (3)
  - CLOSTRIDIAL INFECTION [None]
  - PSEUDOMONAS INFECTION [None]
  - SPUTUM CULTURE POSITIVE [None]
